FAERS Safety Report 13757052 (Version 2)
Quarter: 2018Q1

REPORT INFORMATION
  Report Type: Spontaneous
  Country: JP (occurrence: JP)
  Receive Date: 20170715
  Receipt Date: 20180120
  Transmission Date: 20180508
  Serious: Yes (Hospitalization, Other)
  Sender: FDA-Public Use
  Company Number: JP-AMGEN-JPNSP2017107636

PATIENT
  Age: 54 Year
  Sex: Female

DRUGS (4)
  1. G-LASTA [Suspect]
     Active Substance: PEGFILGRASTIM
     Indication: NEUTROPENIA
     Dosage: 350 UNK, UNK
     Route: 065
  2. DOCETAXEL. [Suspect]
     Active Substance: DOCETAXEL
     Indication: OESOPHAGEAL CARCINOMA
     Dosage: 60 MG, UNK
     Route: 041
     Dates: start: 201602
  3. CISPLATIN. [Suspect]
     Active Substance: CISPLATIN
     Indication: OESOPHAGEAL CARCINOMA
     Dosage: 6 MG, UNK
     Route: 041
     Dates: start: 201602
  4. 5-FU                               /00098801/ [Suspect]
     Active Substance: FLUOROURACIL
     Indication: OESOPHAGEAL CARCINOMA
     Dosage: 350 MG, UNK
     Route: 041
     Dates: start: 201602

REACTIONS (3)
  - Acute focal bacterial nephritis [Recovering/Resolving]
  - Decreased immune responsiveness [Unknown]
  - Neutrophil count decreased [Recovering/Resolving]
